FAERS Safety Report 5005929-1 (Version None)
Quarter: 2006Q2

REPORT INFORMATION
  Report Type: 
  Country: None (occurrence: None)
  Receive Date: 20060517
  Receipt Date: 20060517
  Transmission Date: 20061013
  Serious: Yes (Life-Threatening)
  Sender: FDA-Public Use
  Company Number: None

PATIENT
  Age: 78 Year
  Sex: Female
  Weight: 72 kg

DRUGS (7)
  1. AVELOX [Suspect]
     Indication: PSEUDOMONAS INFECTION
     Dosage: 400MG DAILY IV DRIP
     Route: 041
     Dates: start: 20060122, end: 20060123
  2. AVELOX [Suspect]
     Indication: PULMONARY INFARCTION
     Dosage: 400MG DAILY IV DRIP
     Route: 041
     Dates: start: 20060122, end: 20060123
  3. TIGECYCLINE [Concomitant]
  4. GENTAMICIN [Concomitant]
  5. MORPHINE [Concomitant]
  6. NEXIUM [Concomitant]
  7. ARANESP [Concomitant]

REACTIONS (9)
  - BLOOD PRESSURE SYSTOLIC DECREASED [None]
  - BRADYCARDIA [None]
  - ELECTROCARDIOGRAM QT CORRECTED INTERVAL PROLONGED [None]
  - EXTRASYSTOLES [None]
  - MENTAL STATUS CHANGES [None]
  - SICK SINUS SYNDROME [None]
  - SUPRAVENTRICULAR EXTRASYSTOLES [None]
  - SUPRAVENTRICULAR TACHYCARDIA [None]
  - VENTRICULAR TACHYCARDIA [None]
